FAERS Safety Report 9924462 (Version 1)
Quarter: 2014Q1

REPORT INFORMATION
  Report Type: Spontaneous
  Country: US (occurrence: None)
  Receive Date: 20140224
  Receipt Date: 20140224
  Transmission Date: 20141002
  Serious: Yes (Other)
  Sender: FDA-Public Use
  Company Number: None

PATIENT
  Age: 20 Year
  Sex: Female
  Weight: 55.79 kg

DRUGS (1)
  1. AMOXICILLIN [Suspect]
     Indication: EAR INFECTION
     Dosage: 2 PILLS
     Route: 048
     Dates: start: 20140219

REACTIONS (11)
  - Somnolence [None]
  - Nausea [None]
  - Dyspnoea [None]
  - Respiratory rate increased [None]
  - Vomiting [None]
  - Hypoaesthesia [None]
  - Paraesthesia [None]
  - Muscle spasms [None]
  - Hypoaesthesia [None]
  - Drug dose omission [None]
  - Refusal of treatment by patient [None]
